FAERS Safety Report 24183191 (Version 1)
Quarter: 2024Q3

REPORT INFORMATION
  Report Type: Other
  Country: CN (occurrence: CN)
  Receive Date: 20240807
  Receipt Date: 20240807
  Transmission Date: 20241017
  Serious: Yes (Other)
  Sender: JIANGSU HENGRUI MEDICINE
  Company Number: CN-Jiangsu Hengrui Medicine Co., Ltd.-2160109

PATIENT
  Age: 52 Year
  Sex: Male
  Weight: 70 kg

DRUGS (1)
  1. IODIXANOL [Suspect]
     Active Substance: IODIXANOL
     Indication: Computerised tomogram thorax
     Route: 041
     Dates: start: 20240724, end: 20240724

REACTIONS (1)
  - Injection site swelling [Recovering/Resolving]

NARRATIVE: CASE EVENT DATE: 20240724
